FAERS Safety Report 6107613-X (Version None)
Quarter: 2009Q1

REPORT INFORMATION
  Report Type: 
  Country: None (occurrence: None)
  Receive Date: 20090302
  Receipt Date: 20080923
  Transmission Date: 20090719
  Serious: Yes (Other)
  Sender: FDA-Public Use
  Company Number: WAES 0810USA00576

PATIENT
  Age: 82 Year
  Sex: Male

DRUGS (9)
  1. PRINIVIL [Suspect]
     Dosage: 10 MG/DAILY/PO
     Route: 048
     Dates: start: 20070123, end: 20080815
  2. ASPIRIN [Suspect]
     Dosage: 81 MG/DAILY/PO : 325 MG/DAILY/PO
     Route: 048
     Dates: start: 20060301, end: 20080610
  3. ASPIRIN [Suspect]
     Dosage: 81 MG/DAILY/PO : 325 MG/DAILY/PO
     Route: 048
     Dates: start: 20080611, end: 20080725
  4. ASPIRIN [Suspect]
     Dosage: 81 MG/DAILY/PO : 325 MG/DAILY/PO
     Route: 048
     Dates: start: 20080726
  5. NEURONTIN [Suspect]
     Dates: start: 20060101
  6. PLAVIX [Suspect]
     Indication: CEREBROVASCULAR ACCIDENT PROPHYLAXIS
     Dosage: 300 MG/PO : 75 MG/DAILY/PO
     Route: 048
     Dates: start: 20080611, end: 20080611
  7. PLAVIX [Suspect]
     Indication: CEREBROVASCULAR ACCIDENT PROPHYLAXIS
     Dosage: 300 MG/PO : 75 MG/DAILY/PO
     Route: 048
     Dates: start: 20080611
  8. AGGRENOX [Concomitant]
  9. HYDRODIURIL [Concomitant]

REACTIONS (7)
  - ASTHENIA [None]
  - BLOOD PRESSURE DECREASED [None]
  - CONFUSIONAL STATE [None]
  - DISORIENTATION [None]
  - DIZZINESS [None]
  - FATIGUE [None]
  - VOMITING [None]
